FAERS Safety Report 7965124-0 (Version None)
Quarter: 2011Q4

REPORT INFORMATION
  Report Type: 
  Country: None (occurrence: None)
  Receive Date: 20111208
  Receipt Date: 20111104
  Transmission Date: 20120403
  Serious: Yes (Hospitalization)
  Sender: FDA-Public Use
  Company Number: US-ROCHE-799776

PATIENT
  Age: 64 Year
  Sex: Male

DRUGS (12)
  1. TRIAMCINOLONE [Concomitant]
  2. ACETAMINOPHEN [Concomitant]
  3. BLINDED GS 9256 (NS3 PROTEASE INHIBITOR) [Suspect]
     Indication: HEPATITIS C
     Route: 048
     Dates: start: 20110511, end: 20110804
  4. TERAZOSIN [Concomitant]
  5. IBUPROFEN [Concomitant]
  6. PEGINTERFERON ALFA-2A [Suspect]
     Indication: HEPATITIS C
     Route: 058
     Dates: start: 20110511, end: 20110804
  7. COPEGUS [Suspect]
     Indication: HEPATITIS C
     Route: 048
     Dates: start: 20110511, end: 20110804
  8. SILDENAFIL [Concomitant]
  9. BLINDED TEGOBUVIR [Suspect]
     Indication: HEPATITIS C
     Route: 048
     Dates: start: 20110511, end: 20110804
  10. ZOLPIDEM [Concomitant]
  11. ALPRAZOLAM [Concomitant]
  12. BENADRYL [Concomitant]

REACTIONS (4)
  - BLISTER [None]
  - FEBRILE NEUTROPENIA [None]
  - PANCYTOPENIA [None]
  - OEDEMA PERIPHERAL [None]
